FAERS Safety Report 5689197-3 (Version None)
Quarter: 2008Q1

REPORT INFORMATION
  Report Type: 
  Country: None (occurrence: None)
  Receive Date: 20080331
  Receipt Date: 20080320
  Transmission Date: 20080703
  Serious: Yes (Other)
  Sender: FDA-Public Use
  Company Number: GB-ASTRAZENECA-2008GB00495

PATIENT
  Sex: Female

DRUGS (3)
  1. SEROQUEL [Suspect]
     Indication: AFFECTIVE DISORDER
     Route: 048
     Dates: start: 20071129
  2. SEROQUEL [Suspect]
     Dosage: REDUCED DOSE
     Route: 048
  3. VENLAFAXINE XL [Concomitant]
     Indication: DEPRESSION
     Route: 048
     Dates: start: 20040101

REACTIONS (3)
  - BREAST PAIN [None]
  - GALACTORRHOEA [None]
  - GLYCOSURIA [None]
